FAERS Safety Report 13081965 (Version 1)
Quarter: 2017Q1

REPORT INFORMATION
  Report Type: Spontaneous
  Country: IT (occurrence: IT)
  Receive Date: 20170103
  Receipt Date: 20170103
  Transmission Date: 20170428
  Serious: Yes (Death, Other)
  Sender: FDA-Public Use
  Company Number: IT-BAYER-2016-244816

PATIENT
  Age: 64 Year
  Sex: Male

DRUGS (4)
  1. NOREPINEPHRINE [Concomitant]
     Active Substance: NOREPINEPHRINE\NOREPINEPHRINE BITARTRATE
     Dosage: 0.03 ?G/KG/MIN
  2. WARFARIN [Interacting]
     Active Substance: WARFARIN
  3. ACETYLSALICYLIC ACID({=100 MG) [Suspect]
     Active Substance: ASPIRIN
  4. TICLOPIDINE [Interacting]
     Active Substance: TICLOPIDINE

REACTIONS (6)
  - Drug administration error [None]
  - Cerebral haemorrhage [Fatal]
  - Subdural haematoma [Fatal]
  - Labelled drug-drug interaction medication error [None]
  - Embolic cerebral infarction [None]
  - Drug ineffective [None]
